FAERS Safety Report 6369478-0 (Version None)
Quarter: 2009Q3

REPORT INFORMATION
  Report Type: 
  Country: None (occurrence: None)
  Receive Date: 20090923
  Receipt Date: 20090922
  Transmission Date: 20100115
  Serious: Yes (Other)
  Sender: FDA-Public Use
  Company Number: FR-WYE-G04338509

PATIENT
  Sex: Female

DRUGS (1)
  1. ADVIL [Suspect]
     Indication: HEADACHE
     Route: 048
     Dates: start: 20090815, end: 20090830

REACTIONS (3)
  - ARTHRALGIA [None]
  - RASH PAPULAR [None]
  - TOXIC SKIN ERUPTION [None]
